FAERS Safety Report 24763888 (Version 1)
Quarter: 2024Q4

REPORT INFORMATION
  Report Type: Spontaneous
  Country: JP (occurrence: JP)
  Receive Date: 20241223
  Receipt Date: 20241223
  Transmission Date: 20250114
  Serious: Yes (Hospitalization)
  Sender: CSL BEHRING
  Company Number: JP-BEH-2024188498

PATIENT

DRUGS (1)
  1. HIZENTRA [Suspect]
     Active Substance: HUMAN IMMUNOGLOBULIN G
     Dosage: 10 ML, QW
     Route: 065

REACTIONS (2)
  - Hospitalisation [Unknown]
  - Product leakage [Unknown]

NARRATIVE: CASE EVENT DATE: 20241218
